FAERS Safety Report 24577752 (Version 1)
Quarter: 2024Q4

REPORT INFORMATION
  Report Type: Report from Study
  Country: PH (occurrence: PH)
  Receive Date: 20241104
  Receipt Date: 20241104
  Transmission Date: 20250115
  Serious: Yes (Death)
  Sender: OTSUKA
  Company Number: PH-OTSUKA-2024_025322

PATIENT
  Sex: Female

DRUGS (1)
  1. TOLVAPTAN [Suspect]
     Active Substance: TOLVAPTAN
     Indication: Swelling
     Dosage: 1 DF, QOD (15 MG 1 TABLET EVERY OTHER DAY OR 2-3X A WEEK)
     Route: 048

REACTIONS (2)
  - Cardiac failure [Fatal]
  - Inappropriate schedule of product administration [Unknown]
